FAERS Safety Report 19889737 (Version 1)
Quarter: 2021Q3

REPORT INFORMATION
  Report Type: Spontaneous
  Country: US (occurrence: US)
  Receive Date: 20210928
  Receipt Date: 20210928
  Transmission Date: 20211014
  Serious: Yes (Death, Life-Threatening, Other)
  Sender: FDA-Public Use
  Company Number: None

PATIENT
  Age: 59 Year
  Sex: Male
  Weight: 132.6 kg

DRUGS (3)
  1. REMDESIVIR. [Concomitant]
     Active Substance: REMDESIVIR
     Dates: start: 20210920, end: 20210923
  2. METHYLPREDNISOLONE. [Concomitant]
     Active Substance: METHYLPREDNISOLONE
     Dates: start: 20210920, end: 20210923
  3. BARICITINIB. [Suspect]
     Active Substance: BARICITINIB
     Indication: COVID-19
     Route: 048
     Dates: start: 20210920, end: 20210923

REACTIONS (8)
  - Oedema peripheral [None]
  - Pulse absent [None]
  - Pulseless electrical activity [None]
  - Shock [None]
  - Oxygen saturation decreased [None]
  - Pulmonary embolism [None]
  - Cardio-respiratory arrest [None]
  - Catheter site haemorrhage [None]

NARRATIVE: CASE EVENT DATE: 20210924
